FAERS Safety Report 4688782-5 (Version None)
Quarter: 2005Q2

REPORT INFORMATION
  Report Type: 
  Country: None (occurrence: None)
  Receive Date: 20050613
  Receipt Date: 20050530
  Transmission Date: 20051028
  Serious: Yes (Other)
  Sender: FDA-Public Use
  Company Number: JP-JNJFOC-20050600332

PATIENT
  Sex: Male
  Weight: 58.4 kg

DRUGS (9)
  1. REMICADE [Suspect]
     Indication: CROHN'S DISEASE
     Route: 042
  2. PREDONIN [Concomitant]
     Indication: CROHN'S DISEASE
     Route: 042
  3. PENTASA [Concomitant]
     Indication: CROHN'S DISEASE
     Dosage: 9T
     Route: 049
  4. ENTERONON R [Concomitant]
  5. ENTERONON R [Concomitant]
  6. ENTERONON R [Concomitant]
  7. ENTERONON R [Concomitant]
  8. ENTERONON R [Concomitant]
  9. TPN [Concomitant]

REACTIONS (1)
  - COLON CANCER [None]
